FAERS Safety Report 6908622-0 (Version None)
Quarter: 2010Q3

REPORT INFORMATION
  Report Type: 
  Country: None (occurrence: None)
  Receive Date: 20100805
  Receipt Date: 20100723
  Transmission Date: 20110219
  Serious: Yes (Other)
  Sender: FDA-Public Use
  Company Number: US-PFIZER INC-2010093495

PATIENT
  Sex: Male
  Weight: 95.238 kg

DRUGS (10)
  1. NEURONTIN [Suspect]
     Indication: DIABETIC NEUROPATHY
     Dosage: 800 MG, UNK
     Dates: start: 20060101, end: 20090101
  2. LYRICA [Suspect]
     Indication: DIABETIC NEPHROPATHY
     Dosage: 300 MG, 3X/DAY
     Dates: start: 20060101
  3. NEXIUM [Concomitant]
     Indication: ABDOMINAL DISCOMFORT
     Dosage: 40 MG, UNK
  4. WELLBUTRIN [Concomitant]
     Dosage: UNK
  5. XANAX [Concomitant]
     Indication: PANIC ATTACK
     Dosage: UNK
  6. AMLODIPINE [Concomitant]
     Dosage: 10 MG, UNK
  7. LANSOPRAZOLE [Concomitant]
     Indication: ABDOMINAL DISCOMFORT
     Dosage: 30 MG, DAILY
  8. PAROXETINE [Concomitant]
     Dosage: 10 MG, DAILY
  9. BUPROPION [Concomitant]
     Dosage: 150 MG, 2X/DAY
  10. LASIX [Concomitant]
     Dosage: UNK

REACTIONS (5)
  - BALANCE DISORDER [None]
  - FALL [None]
  - OEDEMA PERIPHERAL [None]
  - TYPE 2 DIABETES MELLITUS [None]
  - VISUAL ACUITY REDUCED [None]
